FAERS Safety Report 12512614 (Version 1)
Quarter: 2016Q2

REPORT INFORMATION
  Report Type: Spontaneous
  Country: None (occurrence: None)
  Receive Date: 20160629
  Receipt Date: 20160629
  Transmission Date: 20160815
  Serious: Yes (Other)
  Sender: FDA-Public Use
  Company Number: None

PATIENT
  Age: 26 Year
  Sex: Male
  Weight: 92.99 kg

DRUGS (2)
  1. METHAMPHETAMINE, 5MG MYLAN, MAYNE [Suspect]
     Active Substance: METHAMPHETAMINE
     Indication: ATTENTION DEFICIT/HYPERACTIVITY DISORDER
     Dosage: IN THE MORNING TAKEN BY MOUTH
     Route: 048
     Dates: start: 20160620, end: 20160626
  2. METHAMPHETAMINE [Concomitant]
     Active Substance: METHAMPHETAMINE

REACTIONS (4)
  - Amnesia [None]
  - Fatigue [None]
  - Vertigo [None]
  - Product quality issue [None]

NARRATIVE: CASE EVENT DATE: 20160622
